APPROVED DRUG PRODUCT: FONDAPARINUX SODIUM
Active Ingredient: FONDAPARINUX SODIUM
Strength: 7.5MG/0.6ML
Dosage Form/Route: SOLUTION;SUBCUTANEOUS
Application: A091316 | Product #003 | TE Code: AP
Applicant: DR REDDYS LABORATORIES LTD
Approved: Jul 11, 2011 | RLD: No | RS: No | Type: RX